FAERS Safety Report 13561659 (Version 1)
Quarter: 2017Q2

REPORT INFORMATION
  Report Type: Spontaneous
  Country: US (occurrence: US)
  Receive Date: 20170518
  Receipt Date: 20170518
  Transmission Date: 20170830
  Serious: Yes (Disabling)
  Sender: FDA-Public Use
  Company Number: None

PATIENT
  Age: 80 Year
  Weight: 99 kg

DRUGS (8)
  1. BROMONIDINE 0.2% [Suspect]
     Active Substance: BRIMONIDINE TARTRATE
     Indication: INTRAOCULAR PRESSURE INCREASED
     Route: 047
     Dates: start: 20140601, end: 20160809
  2. SAW PALMETTO [Concomitant]
     Active Substance: HERBALS\SAW PALMETTO
  3. DROZOLOMIDE [Concomitant]
  4. AREDS 2 [Concomitant]
     Active Substance: MINERALS\VITAMINS
  5. CALCIUM PILLS [Concomitant]
  6. FISH OIL [Concomitant]
     Active Substance: FISH OIL
  7. CLOCOSIMINE [Concomitant]
  8. REVERSATOL [Concomitant]

REACTIONS (2)
  - Neovascular age-related macular degeneration [None]
  - Hypersensitivity [None]

NARRATIVE: CASE EVENT DATE: 20160601
